FAERS Safety Report 15315878 (Version 1)
Quarter: 2018Q3

REPORT INFORMATION
  Report Type: Spontaneous
  Country: US (occurrence: US)
  Receive Date: 20180816
  Receipt Date: 20180816
  Transmission Date: 20181010
  Serious: Yes (Disabling)
  Sender: FDA-Public Use
  Company Number: None

PATIENT
  Age: 59 Year
  Sex: Female
  Weight: 87.75 kg

DRUGS (1)
  1. LEVOTHYROXINE 120 [Suspect]
     Active Substance: LEVOTHYROXINE
     Indication: THYROIDECTOMY
     Dosage: ?          QUANTITY:1 TABLET(S);?
     Route: 048
     Dates: start: 20040501, end: 20170401

REACTIONS (10)
  - Disturbance in attention [None]
  - Hyperthyroidism [None]
  - Dyspepsia [None]
  - Therapy change [None]
  - Fatigue [None]
  - Peripheral swelling [None]
  - Alopecia [None]
  - Vision blurred [None]
  - Insomnia [None]
  - Weight increased [None]

NARRATIVE: CASE EVENT DATE: 20170401
